FAERS Safety Report 18628895 (Version 1)
Quarter: 2020Q4

REPORT INFORMATION
  Report Type: Spontaneous
  Country: FR (occurrence: FR)
  Receive Date: 20201217
  Receipt Date: 20201217
  Transmission Date: 20210114
  Serious: Yes (Other)
  Sender: FDA-Public Use
  Company Number: FR-UCBSA-2020051706

PATIENT
  Sex: Female

DRUGS (4)
  1. ANDROCUR [Suspect]
     Active Substance: CYPROTERONE ACETATE
     Indication: ACNE
     Dosage: UNK
     Route: 048
     Dates: start: 19991023, end: 20100216
  2. LOVENOX HP [Suspect]
     Active Substance: ENOXAPARIN SODIUM
     Indication: PRODUCT USED FOR UNKNOWN INDICATION
  3. ANDROCUR [Suspect]
     Active Substance: CYPROTERONE ACETATE
     Indication: TOBACCO USER
  4. KEPPRA [Suspect]
     Active Substance: LEVETIRACETAM
     Indication: PRODUCT USED FOR UNKNOWN INDICATION
     Dosage: UNK

REACTIONS (13)
  - Weight decreased [Unknown]
  - Ageusia [Unknown]
  - Product use in unapproved indication [Unknown]
  - Meningioma [Unknown]
  - Fatigue [Unknown]
  - Headache [Unknown]
  - Depression [Unknown]
  - Anxiety [Not Recovered/Not Resolved]
  - Visual acuity reduced [Unknown]
  - Asthenopia [Unknown]
  - Off label use [Unknown]
  - Migraine with aura [Unknown]
  - Anosmia [Unknown]

NARRATIVE: CASE EVENT DATE: 20100611
